FAERS Safety Report 10856250 (Version 1)
Quarter: 2015Q1

REPORT INFORMATION
  Report Type: Spontaneous
  Country: RO (occurrence: RO)
  Receive Date: 20150223
  Receipt Date: 20150223
  Transmission Date: 20150721
  Serious: Yes (Life-Threatening, Hospitalization)
  Sender: FDA-Public Use
  Company Number: RO-ABBVIE-15K-135-1350201-00

PATIENT
  Sex: Male
  Weight: 80 kg

DRUGS (2)
  1. HUMIRA [Suspect]
     Active Substance: ADALIMUMAB
     Indication: PSORIATIC ARTHROPATHY
     Route: 058
     Dates: start: 20120522, end: 201410
  2. METHOTREXATE [Concomitant]
     Active Substance: METHOTREXATE
     Indication: PSORIATIC ARTHROPATHY
     Route: 058
     Dates: start: 201103, end: 201410

REACTIONS (5)
  - Pain in extremity [Unknown]
  - Myalgia [Unknown]
  - Hyperhidrosis [Unknown]
  - Tuberculosis [Recovering/Resolving]
  - Muscle fatigue [Unknown]

NARRATIVE: CASE EVENT DATE: 2014
